FAERS Safety Report 20205559 (Version 1)
Quarter: 2021Q4

REPORT INFORMATION
  Report Type: Report from Study
  Country: AR (occurrence: AR)
  Receive Date: 20211220
  Receipt Date: 20211220
  Transmission Date: 20220303
  Serious: Yes (Hospitalization)
  Sender: FDA-Public Use
  Company Number: AR-NOVARTISPH-NVSC2021AR223033

PATIENT
  Age: 13 Year
  Sex: Male

DRUGS (2)
  1. ILARIS [Suspect]
     Active Substance: CANAKINUMAB
     Indication: Still^s disease
     Dosage: 150 MG, QMO
     Route: 058
     Dates: start: 20180425
  2. ILARIS [Suspect]
     Active Substance: CANAKINUMAB
     Indication: Juvenile idiopathic arthritis

REACTIONS (3)
  - Drug ineffective [Unknown]
  - Condition aggravated [Recovered/Resolved]
  - Hydroxycorticosteroids increased [Unknown]

NARRATIVE: CASE EVENT DATE: 20210920
